FAERS Safety Report 8552462-6 (Version None)
Quarter: 2012Q3

REPORT INFORMATION
  Report Type: 
  Country: None (occurrence: None)
  Receive Date: 20120731
  Receipt Date: 20120723
  Transmission Date: 20120928
  Serious: Yes (Other)
  Sender: FDA-Public Use
  Company Number: SA-ACCORD-014243

PATIENT

DRUGS (2)
  1. VALPROATE SODIUM [Concomitant]
     Indication: JUVENILE MYOCLONIC EPILEPSY
  2. LEVETIRACETAM [Suspect]
     Indication: JUVENILE MYOCLONIC EPILEPSY

REACTIONS (1)
  - EPILEPSY [None]
